FAERS Safety Report 7659183-2 (Version None)
Quarter: 2011Q3

REPORT INFORMATION
  Report Type: 
  Country: None (occurrence: None)
  Receive Date: 20110805
  Receipt Date: 20110801
  Transmission Date: 20111222
  Serious: Yes (Hospitalization)
  Sender: FDA-Public Use
  Company Number: AU-GLAXOSMITHKLINE-B0737441A

PATIENT
  Sex: Female
  Weight: 67 kg

DRUGS (3)
  1. OMEPRAZOLE [Concomitant]
     Dosage: 20MG PER DAY
     Dates: start: 20040101
  2. VALACYCLOVIR HYDROCHLORIDE [Suspect]
     Indication: HERPES ZOSTER
     Route: 065
     Dates: start: 20110710, end: 20110717
  3. MIRTAZAPINE [Concomitant]
     Dosage: 30MG AT NIGHT
     Dates: start: 20040101

REACTIONS (3)
  - HYPERMAGNESAEMIA [None]
  - SUPRAVENTRICULAR TACHYCARDIA [None]
  - RENAL IMPAIRMENT [None]
